FAERS Safety Report 20554992 (Version 1)
Quarter: 2022Q1

REPORT INFORMATION
  Report Type: Report from Study
  Country: US (occurrence: US)
  Receive Date: 20220304
  Receipt Date: 20220304
  Transmission Date: 20220423
  Serious: Yes (Other)
  Sender: FDA-Public Use
  Company Number: US-009507513-2006USA010183

PATIENT
  Age: 25 Year
  Sex: Female
  Weight: 47.166 kg

DRUGS (3)
  1. IMPLANON [Suspect]
     Active Substance: ETONOGESTREL
     Dosage: 1 ROD, EVERY THREE YEARS, STRENGTH: 68 MG
     Route: 059
     Dates: start: 2017, end: 20200622
  2. IMPLANON [Suspect]
     Active Substance: ETONOGESTREL
     Dosage: 1 ROD, EVERY THREE YEARS, STRENGTH: 68 MG
     Route: 059
     Dates: start: 20200622
  3. NEXPLANON [Suspect]
     Active Substance: ETONOGESTREL
     Dosage: 1 ROD, EVERY THREE YEARS, STRENGTH: 68 MG
     Route: 059
     Dates: start: 20200622, end: 20200622

REACTIONS (6)
  - Thrombosis [Unknown]
  - Hypoaesthesia [Unknown]
  - Device difficult to use [Recovered/Resolved]
  - Wrong technique in device usage process [Unknown]
  - Device placement issue [Recovered/Resolved]
  - Complication of device insertion [Recovered/Resolved]

NARRATIVE: CASE EVENT DATE: 20200622
